FAERS Safety Report 24584428 (Version 2)
Quarter: 2024Q4

REPORT INFORMATION
  Report Type: Report from Study
  Country: CA (occurrence: CA)
  Receive Date: 20241106
  Receipt Date: 20241113
  Transmission Date: 20250115
  Serious: Yes (Other)
  Sender: PFIZER
  Company Number: CA-PFIZER INC-202400291981

PATIENT
  Age: 44 Year
  Sex: Male

DRUGS (7)
  1. METRONIDAZOLE [Suspect]
     Active Substance: METRONIDAZOLE
     Dosage: UNK
     Route: 065
  2. CIPROFLOXACIN HYDROCHLORIDE [Suspect]
     Active Substance: CIPROFLOXACIN HYDROCHLORIDE
     Dosage: UNK
     Route: 065
  3. ENTYVIO [Suspect]
     Active Substance: VEDOLIZUMAB
     Indication: Colitis ulcerative
     Dosage: 300 MG,1 EVERY 4 WEEKS
     Route: 042
  4. ENTYVIO [Suspect]
     Active Substance: VEDOLIZUMAB
     Dosage: 300 MG
     Route: 042
  5. ENTYVIO [Suspect]
     Active Substance: VEDOLIZUMAB
     Dosage: 300 MG,1 EVERY 4 WEEKS
     Route: 042
  6. PREDNISONE [Concomitant]
     Active Substance: PREDNISONE
     Dosage: UNK
  7. METAMUCIL THERAPY FOR REGULARITY [Concomitant]
     Active Substance: PSYLLIUM HUSK

REACTIONS (4)
  - Abscess [Not Recovered/Not Resolved]
  - Colitis ulcerative [Not Recovered/Not Resolved]
  - Therapeutic reaction time decreased [Not Recovered/Not Resolved]
  - Off label use [Unknown]
